FAERS Safety Report 19782186 (Version 1)
Quarter: 2021Q3

REPORT INFORMATION
  Report Type: Spontaneous
  Country: TR (occurrence: TR)
  Receive Date: 20210903
  Receipt Date: 20210903
  Transmission Date: 20211014
  Serious: Yes (Hospitalization, Other)
  Sender: FDA-Public Use
  Company Number: TR-SUN PHARMACEUTICAL INDUSTRIES LTD-2021RR-309838

PATIENT
  Age: 6 Month
  Sex: Male

DRUGS (3)
  1. VANCOMYCIN HYDROCHLORIDE. [Suspect]
     Active Substance: VANCOMYCIN HYDROCHLORIDE
     Indication: MENINGITIS BACTERIAL
     Dosage: 60 MILLIGRAM/KILOGRAM, DAILY
     Route: 065
  2. CEFTRIAXONE. [Suspect]
     Active Substance: CEFTRIAXONE
     Indication: MENINGITIS BACTERIAL
     Dosage: 100 MILLIGRAM/KILOGRAM, DAILY
     Route: 042
  3. DEXAMETHASONE. [Suspect]
     Active Substance: DEXAMETHASONE
     Indication: MENINGITIS BACTERIAL
     Dosage: 0.15 MILLIGRAM/KILOGRAM, 1DOSE/6HOUR
     Route: 065

REACTIONS (2)
  - Clonic convulsion [Unknown]
  - Drug ineffective [Unknown]
